FAERS Safety Report 8401487-X (Version None)
Quarter: 2012Q2

REPORT INFORMATION
  Report Type: 
  Country: None (occurrence: None)
  Receive Date: 20120601
  Receipt Date: 20120530
  Transmission Date: 20120825
  Serious: Yes (Hospitalization)
  Sender: FDA-Public Use
  Company Number: PHHY2012NL040308

PATIENT
  Sex: Male
  Weight: 62 kg

DRUGS (10)
  1. ZOMETA [Suspect]
     Dosage: 4 MG/100 ML, EVERY 4 WEEKS
     Dates: start: 20111221
  2. POLYETHYLENE GLYCOL [Concomitant]
  3. FERROFUMARAT [Concomitant]
     Dosage: 200 MG, BID
  4. FOLIC ACID [Concomitant]
  5. FENTANYL-100 [Concomitant]
  6. ZOMETA [Suspect]
     Indication: METASTASES TO BONE
     Dosage: 4 MG/100 ML, EVERY 4 WEEKS
     Dates: start: 20111201
  7. PANTOPRAZOLE [Concomitant]
     Dosage: 40 MG, UNK
  8. ACETAMINOPHEN [Concomitant]
     Dosage: 500 MG, PRN
  9. NORTRIPTYLINE HCL [Concomitant]
     Dosage: 10 MG, TID
  10. ZOMETA [Suspect]
     Dosage: 4 MG/100 ML, EVERY 4 WEEKS
     Dates: start: 20120201, end: 20120216

REACTIONS (5)
  - ISCHAEMIA [None]
  - NEOPLASM MALIGNANT [None]
  - ARTERIAL OCCLUSIVE DISEASE [None]
  - NEOPLASM PROGRESSION [None]
  - TUMOUR COMPRESSION [None]
